FAERS Safety Report 7207419-4 (Version None)
Quarter: 2011Q1

REPORT INFORMATION
  Report Type: 
  Country: None (occurrence: None)
  Receive Date: 20110103
  Receipt Date: 20101218
  Transmission Date: 20110831
  Serious: Yes (Hospitalization, Other)
  Sender: FDA-Public Use
  Company Number: PHHY2010NL86279

PATIENT
  Age: 61 Year
  Sex: Male

DRUGS (5)
  1. SPIRONOLACTONE [Suspect]
     Dosage: 50MG/DAY
  2. ENALAPRIL [Suspect]
     Dosage: 10MG, BID
  3. FUROSEMIDE [Suspect]
     Dosage: 80MG, BID
  4. ENALAPRIL [Suspect]
     Dosage: 20MG, BID
  5. CANDESARTAN [Concomitant]

REACTIONS (12)
  - TACHYPNOEA [None]
  - BLOOD UREA INCREASED [None]
  - DIARRHOEA [None]
  - HYPERKALAEMIA [None]
  - BLOOD POTASSIUM INCREASED [None]
  - BLOOD BICARBONATE ABNORMAL [None]
  - HEART RATE DECREASED [None]
  - BLOOD CREATININE INCREASED [None]
  - BLOOD SODIUM DECREASED [None]
  - ABDOMINAL DISCOMFORT [None]
  - RENAL FAILURE ACUTE [None]
  - BLOOD PRESSURE DECREASED [None]
